FAERS Safety Report 9515310 (Version 1)
Quarter: 2013Q1

REPORT INFORMATION
  Report Type: Spontaneous
  Country: US (occurrence: None)
  Receive Date: 20130305
  Receipt Date: 20130305
  Transmission Date: 20140127
  Serious: Yes (Other)
  Sender: FDA-Public Use
  Company Number: 163-21880-12113970

PATIENT
  Age: 66 Year
  Sex: Female
  Weight: 75.3 kg

DRUGS (8)
  1. REVLIMID (LENALIDOMIDE) (25 MILLIGRAM, CAPSULES) [Suspect]
     Indication: PLASMA CELL MYELOMA
     Route: 048
     Dates: start: 200911
  2. LOSARTAN/HCTZ (HYZAAR) (UNKNOWN) [Concomitant]
  3. CLONIDINE (CLONIDINE) (UNKNOWN) [Concomitant]
  4. ALLOPURINOL (ALLOPURINOL) (UNKNOWN) [Concomitant]
  5. CELEBREX (CELECOXIB) (UNKNOWN) [Concomitant]
  6. CYCLOBENZAPRINE (CYCLOBENZAPRINE) (UNKNOWN) [Concomitant]
  7. LYRICA (PREGABALIN) (UNKNOWN) [Concomitant]
  8. ULTRAM (TRAMADOL HYDROCHLORIDE) (UNKNOWN) [Concomitant]

REACTIONS (1)
  - Plasma cell myeloma [None]
